FAERS Safety Report 12796885 (Version 2)
Quarter: 2016Q4

REPORT INFORMATION
  Report Type: Report from Study
  Country: CO (occurrence: CO)
  Receive Date: 20160929
  Receipt Date: 20161007
  Transmission Date: 20170207
  Serious: Yes (Death, Hospitalization)
  Sender: FDA-Public Use
  Company Number: PHHY2016CO132501

PATIENT
  Sex: Male
  Weight: 49 kg

DRUGS (2)
  1. TRAMADOL. [Concomitant]
     Active Substance: TRAMADOL
     Indication: PAIN
     Dosage: 10 MG, PRN
     Route: 048
  2. SANDOSTATIN LAR DEPOT [Suspect]
     Active Substance: OCTREOTIDE ACETATE
     Indication: NEUROENDOCRINE TUMOUR
     Dosage: 30 MG, QMO (ONCE A MONTH)
     Route: 030
     Dates: start: 20160903

REACTIONS (7)
  - Decreased appetite [Unknown]
  - Myocardial infarction [Fatal]
  - Weight decreased [Unknown]
  - Laceration [Unknown]
  - Decubitus ulcer [Unknown]
  - Inflammation [Unknown]
  - Dysstasia [Unknown]
